FAERS Safety Report 9160462 (Version 2)
Quarter: 2013Q1

REPORT INFORMATION
  Report Type: Report from Study
  Country: US (occurrence: US)
  Receive Date: 20130313
  Receipt Date: 20130315
  Transmission Date: 20140127
  Serious: Yes (Hospitalization)
  Sender: FDA-Public Use
  Company Number: US-JNJFOC-20130301508

PATIENT
  Age: 17 Year
  Sex: Female
  Weight: 58.3 kg

DRUGS (12)
  1. REMICADE [Suspect]
     Indication: IRRITABLE BOWEL SYNDROME
     Route: 042
     Dates: start: 20050831, end: 20090609
  2. BUDESONIDE [Suspect]
     Indication: PRODUCT USED FOR UNKNOWN INDICATION
     Route: 065
     Dates: end: 20130217
  3. HUMIRA [Concomitant]
     Indication: PRODUCT USED FOR UNKNOWN INDICATION
     Route: 065
  4. HUMIRA [Concomitant]
     Indication: PRODUCT USED FOR UNKNOWN INDICATION
     Route: 065
     Dates: start: 20130219
  5. HUMIRA [Concomitant]
     Indication: PRODUCT USED FOR UNKNOWN INDICATION
     Route: 065
     Dates: start: 20100323, end: 20110201
  6. HUMIRA [Concomitant]
     Indication: PRODUCT USED FOR UNKNOWN INDICATION
     Route: 065
     Dates: start: 20110208, end: 20110902
  7. METHOTREXATE [Concomitant]
     Route: 065
     Dates: end: 20130217
  8. METHOTREXATE [Concomitant]
     Route: 065
     Dates: start: 20121024
  9. FLINTSTONES [Concomitant]
     Route: 065
  10. MAXALT [Concomitant]
     Route: 065
  11. YAZ [Concomitant]
     Dosage: 28 TABLETS
     Route: 065
  12. ZOFRAN [Concomitant]
     Dosage: 28 TABLETS
     Route: 065

REACTIONS (1)
  - Hepatic steatosis [Recovered/Resolved]
